FAERS Safety Report 5342397-4 (Version None)
Quarter: 2007Q2

REPORT INFORMATION
  Report Type: 
  Country: None (occurrence: None)
  Receive Date: 20070601
  Receipt Date: 20070524
  Transmission Date: 20071010
  Serious: Yes (Hospitalization)
  Sender: FDA-Public Use
  Company Number: JP-GENENTECH-241974

PATIENT
  Sex: Male

DRUGS (13)
  1. RITUXIMAB [Suspect]
     Indication: SYSTEMIC LUPUS ERYTHEMATOSUS
     Dosage: 200 MG, QD
     Route: 042
     Dates: start: 20051114
  2. CELLCEPT [Suspect]
     Indication: SYSTEMIC LUPUS ERYTHEMATOSUS
     Dosage: 250 MG, UNK
     Route: 048
     Dates: start: 20070206
  3. CELLCEPT [Suspect]
     Dosage: 500 MG, UNK
     Route: 048
     Dates: start: 20060718, end: 20070205
  4. CELLCEPT [Suspect]
     Dosage: 600 MG, UNK
     Route: 048
     Dates: start: 20051215, end: 20060717
  5. AZATHIOPRINE [Suspect]
     Indication: SYSTEMIC LUPUS ERYTHEMATOSUS
     Dosage: 300 MG, UNK
     Route: 048
     Dates: start: 20040928
  6. ENDOXAN [Suspect]
     Indication: SYSTEMIC LUPUS ERYTHEMATOSUS
     Dosage: 550 MG, UNK
     Route: 042
     Dates: start: 20051125
  7. DIAMOX [Concomitant]
     Indication: DRUG USE FOR UNKNOWN INDICATION
  8. PREDNISOLONE [Concomitant]
     Indication: DRUG USE FOR UNKNOWN INDICATION
  9. BAKTAR [Concomitant]
     Indication: DRUG USE FOR UNKNOWN INDICATION
  10. ODRIK [Concomitant]
     Indication: DRUG USE FOR UNKNOWN INDICATION
  11. LOSARTAN POTASSIUM [Concomitant]
     Indication: DRUG USE FOR UNKNOWN INDICATION
  12. ALFAROL [Concomitant]
     Indication: DRUG USE FOR UNKNOWN INDICATION
  13. MYCOPHENOLATE MOFETIL [Concomitant]
     Indication: DRUG USE FOR UNKNOWN INDICATION

REACTIONS (1)
  - HYPOGAMMAGLOBULINAEMIA [None]
